FAERS Safety Report 8575995-5 (Version None)
Quarter: 2012Q3

REPORT INFORMATION
  Report Type: 
  Country: None (occurrence: None)
  Receive Date: 20120807
  Receipt Date: 20120801
  Transmission Date: 20120928
  Serious: Yes (Hospitalization, Other)
  Sender: FDA-Public Use
  Company Number: BR-BAYER-2012-078129

PATIENT
  Age: 38 Year
  Sex: Male

DRUGS (4)
  1. AMANTADINE HCL [Concomitant]
     Dosage: DAILY DOSE 2 DF
     Route: 048
  2. BETASERON [Suspect]
     Indication: RELAPSING-REMITTING MULTIPLE SCLEROSIS
     Dosage: 1 ML, QOD
     Route: 058
     Dates: start: 20100101
  3. RIVOTRIL [Concomitant]
     Indication: INSOMNIA
     Dosage: UNK
     Route: 048
  4. GABAPENTIN [Concomitant]
     Dosage: DAILY DOSE 1800 MG
     Route: 048

REACTIONS (6)
  - MULTIPLE SCLEROSIS RELAPSE [None]
  - ARTHRALGIA [None]
  - INJECTION SITE PAIN [None]
  - HYPOAESTHESIA [None]
  - NECROSIS [None]
  - PYREXIA [None]
